FAERS Safety Report 4363053-5 (Version None)
Quarter: 2004Q2

REPORT INFORMATION
  Report Type: 
  Country: None (occurrence: None)
  Receive Date: 20040518
  Receipt Date: 20040115
  Transmission Date: 20050107
  Serious: Yes (Life-Threatening, Hospitalization)
  Sender: FDA-Public Use
  Company Number: EM2004-0117

PATIENT
  Age: 46 Year
  Sex: Male

DRUGS (4)
  1. ALDESLEUKIN; CHIRON (ALDESLEUKIN) INJECTION [Suspect]
     Indication: HIV INFECTION
     Dosage: 4.5 MIU, BID, SUBCUTAN.
     Route: 058
     Dates: start: 20031007, end: 20031012
  2. LAMIVUDINE (LAMIVUDINE) [Concomitant]
  3. STAVUDINE (STAVUDINE) [Concomitant]
  4. EFAVIRENZ (EFAVIRENZ) [Concomitant]

REACTIONS (11)
  - ARTERIAL OCCLUSIVE DISEASE [None]
  - DIARRHOEA [None]
  - GAMMA-GLUTAMYLTRANSFERASE INCREASED [None]
  - GASTROINTESTINAL NECROSIS [None]
  - HAEMOGLOBIN DECREASED [None]
  - HYPERTENSION [None]
  - ILEAL PERFORATION [None]
  - ILEAL STENOSIS [None]
  - INTESTINAL INFARCTION [None]
  - POST PROCEDURAL COMPLICATION [None]
  - POST PROCEDURAL DIARRHOEA [None]
